FAERS Safety Report 5179126-3 (Version None)
Quarter: 2006Q4

REPORT INFORMATION
  Report Type: 
  Country: None (occurrence: None)
  Receive Date: 20061218
  Receipt Date: 20061218
  Transmission Date: 20070319
  Serious: Yes (Hospitalization)
  Sender: FDA-Public Use
  Company Number: None

PATIENT
  Sex: Male
  Weight: 31.6 kg

DRUGS (4)
  1. PEG-L-ASPARAGINASE (K-H) [Suspect]
     Dosage: 7135 UNIT
  2. VINCRISTINE SULFATE [Suspect]
     Dosage: 7 MG
  3. DEXAMETHASONE [Suspect]
     Dosage: 244 MG
  4. MERCAPTOPURINE [Suspect]
     Dosage: 2575 MG

REACTIONS (9)
  - ASCITES [None]
  - BACTERIA STOOL IDENTIFIED [None]
  - CLOSTRIDIAL INFECTION [None]
  - CONDITION AGGRAVATED [None]
  - FLANK PAIN [None]
  - HEADACHE [None]
  - PANCREATIC PSEUDOCYST [None]
  - PANCREATITIS [None]
  - PLEURAL EFFUSION [None]
